FAERS Safety Report 18199397 (Version 2)
Quarter: 2020Q4

REPORT INFORMATION
  Report Type: Spontaneous
  Country: JP (occurrence: JP)
  Receive Date: 20200826
  Receipt Date: 20201104
  Transmission Date: 20210113
  Serious: Yes (Hospitalization)
  Sender: FDA-Public Use
  Company Number: JP-EISAI MEDICAL RESEARCH-EC-2020-077557

PATIENT
  Sex: Female
  Weight: 55 kg

DRUGS (4)
  1. LENVIMA [Suspect]
     Active Substance: LENVATINIB
     Indication: HEPATOCELLULAR CARCINOMA
     Route: 048
     Dates: start: 202004, end: 202004
  2. LENVIMA [Suspect]
     Active Substance: LENVATINIB
     Dosage: 8 MG 5 DAYS ON AND 2 DAYS OFF
     Route: 048
     Dates: start: 202007, end: 202007
  3. LENVIMA [Suspect]
     Active Substance: LENVATINIB
     Dosage: 8 MG 5 DAYS ON AND 2 DAYS OFF
     Route: 048
     Dates: start: 202004, end: 20200608
  4. LENVIMA [Suspect]
     Active Substance: LENVATINIB
     Route: 048
     Dates: start: 202008

REACTIONS (5)
  - Dehydration [Recovering/Resolving]
  - Decreased appetite [Recovering/Resolving]
  - Nausea [Unknown]
  - Vomiting [Unknown]
  - Malignant neoplasm progression [Not Recovered/Not Resolved]

NARRATIVE: CASE EVENT DATE: 2020
